FAERS Safety Report 5233700-4 (Version None)
Quarter: 2007Q1

REPORT INFORMATION
  Report Type: 
  Country: None (occurrence: None)
  Receive Date: 20070208
  Receipt Date: 20070205
  Transmission Date: 20070707
  Serious: Yes (Other)
  Sender: FDA-Public Use
  Company Number: K200700048

PATIENT
  Age: 49 Year
  Sex: Female
  Weight: 99.1 kg

DRUGS (5)
  1. CORTISPORIN [Suspect]
     Route: 001
     Dates: start: 20061201, end: 20070101
  2. NARDIL [Concomitant]
     Dosage: 60MG PER DAY
     Dates: start: 20060401
  3. METHADONE HCL [Concomitant]
     Dates: start: 20000101
  4. KLONOPIN [Concomitant]
     Dates: start: 20061001
  5. SYNTHROID [Concomitant]
     Dosage: 10MG PER DAY

REACTIONS (1)
  - DEAFNESS [None]
